FAERS Safety Report 5598505-3 (Version None)
Quarter: 2008Q1

REPORT INFORMATION
  Report Type: 
  Country: None (occurrence: None)
  Receive Date: 20080122
  Receipt Date: 20080114
  Transmission Date: 20080703
  Serious: Yes (Other)
  Sender: FDA-Public Use
  Company Number: DK-ASTRAZENECA-2007SE05571

PATIENT
  Age: 62 Year
  Sex: Male
  Weight: 65 kg

DRUGS (3)
  1. RHINOCORT [Suspect]
     Dosage: 100 MG IN EACH NOSTRIL
     Route: 045
     Dates: start: 19990101, end: 20070101
  2. CASODEX [Concomitant]
     Dates: start: 20020101, end: 20060101
  3. SOLADEX [Concomitant]
     Dates: start: 20060101

REACTIONS (2)
  - CATARACT [None]
  - GLAUCOMA [None]
